FAERS Safety Report 7142123-2 (Version None)
Quarter: 2010Q4

REPORT INFORMATION
  Report Type: 
  Country: None (occurrence: None)
  Receive Date: 20101207
  Receipt Date: 20101124
  Transmission Date: 20110411
  Serious: Yes (Other)
  Sender: FDA-Public Use
  Company Number: GXKR2010FR13317

PATIENT
  Age: 47 Year
  Sex: Male

DRUGS (5)
  1. CYCLOSPORINE [Suspect]
     Indication: CHOROIDITIS
     Dosage: 200 MG/DAY
     Route: 065
     Dates: start: 19991201
  2. CYCLOSPORINE [Suspect]
     Dosage: 300MG/DAY
     Route: 065
     Dates: start: 20000701
  3. INTERFERON ALFA-2A [Concomitant]
     Indication: BEHCET'S SYNDROME
  4. COLCHICINE [Concomitant]
     Indication: BEHCET'S SYNDROME
  5. PREDNISONE [Concomitant]
     Indication: BEHCET'S SYNDROME

REACTIONS (9)
  - AXONAL NEUROPATHY [None]
  - BEHCET'S SYNDROME [None]
  - CEREBELLAR SYNDROME [None]
  - CSF PROTEIN INCREASED [None]
  - DYSAESTHESIA [None]
  - HEADACHE [None]
  - NERVE CONDUCTION STUDIES ABNORMAL [None]
  - PARESIS [None]
  - SPINAL CORD DISORDER [None]
